FAERS Safety Report 7122273-7 (Version None)
Quarter: 2010Q4

REPORT INFORMATION
  Report Type: 
  Country: None (occurrence: None)
  Receive Date: 20101124
  Receipt Date: 20101116
  Transmission Date: 20110411
  Serious: Yes (Hospitalization)
  Sender: FDA-Public Use
  Company Number: GB-JNJCH-2008020197

PATIENT
  Age: 11 Year
  Sex: Male

DRUGS (1)
  1. PARACETAMOL [Suspect]
     Indication: NASOPHARYNGITIS
     Dosage: TEXT:500 MG
     Route: 065

REACTIONS (10)
  - CONDITION AGGRAVATED [None]
  - CONVULSION [None]
  - EPILEPSY [None]
  - LACTIC ACIDOSIS [None]
  - METABOLIC ACIDOSIS [None]
  - METABOLIC DISORDER [None]
  - PYREXIA [None]
  - RENAL IMPAIRMENT [None]
  - TRANSAMINASES INCREASED [None]
  - VOMITING [None]
